FAERS Safety Report 26014068 (Version 1)
Quarter: 2025Q4

REPORT INFORMATION
  Report Type: Spontaneous
  Country: CN (occurrence: CN)
  Receive Date: 20251108
  Receipt Date: 20251108
  Transmission Date: 20260119
  Serious: Yes (Hospitalization)
  Sender: NOVARTIS
  Company Number: CN-002147023-NVSC2025CN170717

PATIENT
  Age: 49 Year
  Sex: Male

DRUGS (3)
  1. VALSARTAN [Suspect]
     Active Substance: VALSARTAN
     Indication: Essential hypertension
     Dosage: 80 MG, QD
     Route: 065
  2. FELODIPINE [Concomitant]
     Active Substance: FELODIPINE
     Indication: Essential hypertension
     Dosage: 2.5 MG, QD (SUSTAINED RELEASE TABLETS)
     Route: 065
  3. FELODIPINE [Concomitant]
     Active Substance: FELODIPINE
     Dosage: 5 MG, QD
     Route: 065

REACTIONS (2)
  - Blood pressure increased [Recovering/Resolving]
  - Dizziness [Recovered/Resolved]
